FAERS Safety Report 4513444-4 (Version None)
Quarter: 2004Q4

REPORT INFORMATION
  Report Type: 
  Country: None (occurrence: None)
  Receive Date: 20041130
  Receipt Date: 20041014
  Transmission Date: 20050328
  Serious: No
  Sender: FDA-Public Use
  Company Number: US-BRISTOL-MYERS SQUIBB COMPANY-12731600

PATIENT
  Age: 77 Year
  Sex: Female
  Weight: 50 kg

DRUGS (7)
  1. ERBITUX [Suspect]
     Indication: COLON CANCER METASTATIC
     Route: 042
     Dates: start: 20041001, end: 20041001
  2. BENADRYL [Concomitant]
     Indication: PREMEDICATION
     Dates: start: 20041001, end: 20041001
  3. TYLENOL (CAPLET) [Concomitant]
     Indication: PREMEDICATION
     Route: 048
     Dates: start: 20041001, end: 20041001
  4. ATENOLOL [Concomitant]
  5. GLYBURIDE [Concomitant]
  6. SYNTHROID [Concomitant]
  7. ZOMETA [Concomitant]
     Route: 042

REACTIONS (1)
  - NAIL DISORDER [None]
